FAERS Safety Report 18298112 (Version 2)
Quarter: 2020Q4

REPORT INFORMATION
  Report Type: Other
  Country: CA (occurrence: CA)
  Receive Date: 20200923
  Receipt Date: 20201221
  Transmission Date: 20210113
  Serious: Yes (Other)
  Sender: FDA-Public Use
  Company Number: CA-CELLTRION INC.-2020CA025795

PATIENT

DRUGS (47)
  1. CYTARABINE. [Suspect]
     Active Substance: CYTARABINE
     Indication: BURKITT^S LYMPHOMA
     Dosage: 3000 MG/M2, 1 EVERY 1 DAYS
     Route: 042
  2. DOXORUBICIN [Suspect]
     Active Substance: DOXORUBICIN
     Indication: BURKITT^S LYMPHOMA STAGE III
     Dosage: 60 MG/M2
     Route: 042
  3. HYDROCORTISONE. [Suspect]
     Active Substance: HYDROCORTISONE
     Indication: BURKITT^S LYMPHOMA STAGE III
     Dosage: UNK
     Route: 037
  4. LEUCOVORIN [FOLINIC ACID] [Concomitant]
     Active Substance: LEUCOVORIN
     Dosage: 15 MG/M2
     Route: 065
  5. LEUCOVORIN [FOLINIC ACID] [Concomitant]
     Active Substance: LEUCOVORIN
     Dosage: 15 MG/M2
     Route: 065
  6. CYCLOPHOSPHAMIDE. [Suspect]
     Active Substance: CYCLOPHOSPHAMIDE
     Dosage: 500 MG/M2
     Route: 042
  7. ETOPOSIDE. [Suspect]
     Active Substance: ETOPOSIDE
     Indication: BURKITT^S LYMPHOMA STAGE III
     Dosage: 150 MG/M2
     Route: 042
  8. METHOTREXATE. [Suspect]
     Active Substance: METHOTREXATE
     Indication: BURKITT^S LYMPHOMA STAGE III
     Dosage: 15 MG
     Route: 037
  9. FILGRASTIM [Concomitant]
     Active Substance: FILGRASTIM
     Indication: PRODUCT USED FOR UNKNOWN INDICATION
     Dosage: 5 MICROGRAM/KILOGRAM
     Route: 058
  10. RASBURICASE [Concomitant]
     Active Substance: RASBURICASE
     Indication: TUMOUR LYSIS SYNDROME
     Route: 065
  11. RITUXIMAB (UNKNOWN) [Suspect]
     Active Substance: RITUXIMAB
     Dosage: 375 MG/M2
     Route: 042
  12. CYCLOPHOSPHAMIDE. [Suspect]
     Active Substance: CYCLOPHOSPHAMIDE
     Indication: BURKITT^S LYMPHOMA STAGE III
     Dosage: 300 MG/M2
     Route: 042
  13. CYTARABINE. [Suspect]
     Active Substance: CYTARABINE
     Dosage: 50 MG/M2, 1 EVERY 1 DAYS
     Route: 042
  14. CYTARABINE. [Suspect]
     Active Substance: CYTARABINE
     Dosage: 30 MG
     Route: 037
  15. CYTARABINE. [Suspect]
     Active Substance: CYTARABINE
     Dosage: 50 MG/M2
     Route: 041
  16. HYDROCORTISONE. [Suspect]
     Active Substance: HYDROCORTISONE
     Indication: BURKITT^S LYMPHOMA STAGE III
     Dosage: 15 MG
     Route: 037
  17. METHOTREXATE. [Suspect]
     Active Substance: METHOTREXATE
     Dosage: UNK
     Route: 037
  18. METHOTREXATE. [Suspect]
     Active Substance: METHOTREXATE
     Dosage: 15 MG
     Route: 037
  19. FILGRASTIM [Concomitant]
     Active Substance: FILGRASTIM
     Dosage: 5 MICROGRAM/KILOGRAM, 1 EVERY 1 DAY
     Route: 058
  20. FILGRASTIM [Concomitant]
     Active Substance: FILGRASTIM
     Dosage: 5 MICROGRAM/KILOGRAM
     Route: 065
  21. LEUCOVORIN [FOLINIC ACID] [Concomitant]
     Active Substance: LEUCOVORIN
     Dosage: 5 MG/M2
     Route: 048
  22. CYCLOPHOSPHAMIDE. [Suspect]
     Active Substance: CYCLOPHOSPHAMIDE
     Indication: BURKITT^S LYMPHOMA STAGE III
     Dosage: 250 MG/M2
     Route: 042
  23. CYTARABINE. [Suspect]
     Active Substance: CYTARABINE
     Indication: BURKITT^S LYMPHOMA
     Dosage: UNK
     Route: 037
  24. ETOPOSIDE. [Suspect]
     Active Substance: ETOPOSIDE
     Indication: BURKITT^S LYMPHOMA STAGE III
     Dosage: 150 MG/M2, 1 EVERY 1 DAYS
     Route: 042
  25. ETOPOSIDE. [Suspect]
     Active Substance: ETOPOSIDE
     Dosage: 200 MG/M2
     Route: 042
  26. HYDROCORTISONE. [Suspect]
     Active Substance: HYDROCORTISONE
     Dosage: 15 MG
     Route: 037
  27. METHOTREXATE. [Suspect]
     Active Substance: METHOTREXATE
     Indication: BURKITT^S LYMPHOMA STAGE III
     Dosage: UNK
     Route: 042
  28. PREDNISONE. [Suspect]
     Active Substance: PREDNISONE
     Indication: BURKITT^S LYMPHOMA STAGE III
     Dosage: 30 MG/M2, 2 EVERY 1 DAYS
     Route: 048
  29. VINCRISTINE [Suspect]
     Active Substance: VINCRISTINE
     Indication: BURKITT^S LYMPHOMA STAGE III
     Dosage: 1 MG/M2
     Route: 040
  30. VINCRISTINE [Suspect]
     Active Substance: VINCRISTINE
     Dosage: 2 MG/M2
     Route: 040
  31. CYTARABINE. [Suspect]
     Active Substance: CYTARABINE
     Dosage: 3000 MG/M2
     Route: 042
  32. LEVOFLOXACIN. [Concomitant]
     Active Substance: LEVOFLOXACIN
     Indication: INHIBITORY DRUG INTERACTION
     Route: 048
  33. ETOPOSIDE. [Suspect]
     Active Substance: ETOPOSIDE
     Dosage: 200 MG/M2, 1 EVERY 1 DAYS
     Route: 042
  34. METHOTREXATE. [Suspect]
     Active Substance: METHOTREXATE
     Dosage: UNK
     Route: 042
  35. PREDNISONE. [Suspect]
     Active Substance: PREDNISONE
     Indication: BURKITT^S LYMPHOMA STAGE III
     Dosage: 30 MG/M2 1 EVERY .5 DAYS
     Route: 048
  36. PREDNISONE. [Suspect]
     Active Substance: PREDNISONE
     Dosage: 30 MG/M2 1 EVERY .5 DAYS
     Route: 048
  37. RITUXIMAB (UNKNOWN) [Suspect]
     Active Substance: RITUXIMAB
     Indication: BURKITT^S LYMPHOMA STAGE III
     Dosage: 375 MG/M2, 1 EVERY 1 DAYS
     Route: 042
  38. RITUXIMAB (UNKNOWN) [Suspect]
     Active Substance: RITUXIMAB
     Dosage: 375 MG/M2
     Route: 042
  39. RITUXIMAB (UNKNOWN) [Suspect]
     Active Substance: RITUXIMAB
     Dosage: 375 MG/M2
     Route: 042
  40. CYTARABINE. [Suspect]
     Active Substance: CYTARABINE
     Dosage: 100 MG/M2
     Route: 041
  41. CYTARABINE. [Suspect]
     Active Substance: CYTARABINE
     Dosage: 50 MG/M2
     Route: 065
  42. DOXORUBICIN [Suspect]
     Active Substance: DOXORUBICIN
     Indication: BURKITT^S LYMPHOMA STAGE III
     Dosage: 60 MG/M2
     Route: 042
  43. HYDROCORTISONE. [Suspect]
     Active Substance: HYDROCORTISONE
     Dosage: 15 MG
     Route: 037
  44. CASPOFUNGIN [Concomitant]
     Active Substance: CASPOFUNGIN
     Indication: INHIBITORY DRUG INTERACTION
     Route: 042
  45. METHOTREXATE. [Suspect]
     Active Substance: METHOTREXATE
     Dosage: 15 MG
     Route: 037
  46. METHOTREXATE. [Suspect]
     Active Substance: METHOTREXATE
     Dosage: UNK
     Route: 042
  47. VINCRISTINE [Suspect]
     Active Substance: VINCRISTINE
     Dosage: 2 MG/M2
     Route: 040

REACTIONS (10)
  - Mucosal inflammation [Recovered/Resolved]
  - Full blood count decreased [Recovered/Resolved]
  - Clostridium difficile colitis [Recovered/Resolved]
  - Clostridium difficile infection [Recovered/Resolved]
  - Hypotension [Recovered/Resolved]
  - Candida infection [Recovered/Resolved]
  - Skin disorder [Recovered/Resolved]
  - Rash pruritic [Recovered/Resolved]
  - Febrile neutropenia [Recovered/Resolved]
  - Rash erythematous [Recovered/Resolved]
